FAERS Safety Report 9250054 (Version 2)
Quarter: 2014Q1

REPORT INFORMATION
  Report Type: Report from Study
  Country: US (occurrence: US)
  Receive Date: 20130424
  Receipt Date: 20140303
  Transmission Date: 20141002
  Serious: Yes (Other)
  Sender: FDA-Public Use
  Company Number: US-BIOGENIDEC-2012BI064875

PATIENT
  Age: 37 Year
  Sex: Female
  Weight: 74 kg

DRUGS (5)
  1. BG00012 [Suspect]
     Indication: MULTIPLE SCLEROSIS
     Dates: start: 20100915, end: 201301
  2. TRAMADOL [Concomitant]
     Indication: MIGRAINE
     Dates: start: 20081003
  3. TRAMADOL [Concomitant]
     Indication: MIGRAINE
     Dates: start: 2013
  4. BIRTH CONTROL PILLS [Concomitant]
  5. VITAMIN D [Concomitant]
     Indication: VITAMIN D DEFICIENCY
     Dates: start: 20070607

REACTIONS (1)
  - Breast cancer [Not Recovered/Not Resolved]
